FAERS Safety Report 10218725 (Version 1)
Quarter: 2014Q2

REPORT INFORMATION
  Report Type: Spontaneous
  Country: US (occurrence: None)
  Receive Date: 20140604
  Receipt Date: 20140604
  Transmission Date: 20141212
  Serious: Yes (Life-Threatening, Other)
  Sender: FDA-Public Use
  Company Number: None

PATIENT
  Age: 35 Year
  Sex: Male

DRUGS (3)
  1. DIVALPROEX [Suspect]
     Indication: CONVULSION
     Dosage: 2 PO AM
     Route: 048
  2. VALPROIC ACID 500 MG [Suspect]
     Dosage: 3, PO, HS
     Route: 048
  3. CARBAMAZEPINE 200MG [Suspect]
     Dosage: 1, PO, BID
     Route: 048

REACTIONS (1)
  - Convulsion [None]
